FAERS Safety Report 4672397-9 (Version None)
Quarter: 2005Q2

REPORT INFORMATION
  Report Type: 
  Country: None (occurrence: None)
  Receive Date: 20050524
  Receipt Date: 20050512
  Transmission Date: 20051028
  Serious: Yes (Other)
  Sender: FDA-Public Use
  Company Number: US-JNJFOC-20050503431

PATIENT
  Sex: Female

DRUGS (24)
  1. INFLIXIMAB [Suspect]
     Indication: RHEUMATOID ARTHRITIS
     Route: 042
     Dates: start: 20000811, end: 20030625
  2. ALBUTEROL [Concomitant]
  3. ATROVENT [Concomitant]
  4. CALCIUM GLUCONATE [Concomitant]
  5. CLONIDINE [Concomitant]
  6. COZAAR [Concomitant]
  7. DURAGESIC-100 [Concomitant]
  8. FOLIC ACID [Concomitant]
  9. IMDUR [Concomitant]
  10. IRON SUPPLEMENT [Concomitant]
  11. LASIX [Concomitant]
  12. MEDROL [Concomitant]
  13. POTASSIUM CHLORIDE [Concomitant]
  14. PREDNISONE [Concomitant]
  15. TOPROL-XL [Concomitant]
  16. VICODIN [Concomitant]
  17. VICODIN [Concomitant]
  18. VITAMIN B6 [Concomitant]
  19. VITAMIN B6 [Concomitant]
  20. VITAMIN B6 [Concomitant]
  21. VITAMIN B6 [Concomitant]
  22. VITAMIN B6 [Concomitant]
  23. VITAMIN B-12 [Concomitant]
  24. VIT C TAB [Concomitant]

REACTIONS (2)
  - BREAST CANCER [None]
  - BREAST CANCER FEMALE [None]
